FAERS Safety Report 7769147-6 (Version None)
Quarter: 2011Q3

REPORT INFORMATION
  Report Type: 
  Country: None (occurrence: None)
  Receive Date: 20110922
  Receipt Date: 20110225
  Transmission Date: 20111222
  Serious: Yes (Other)
  Sender: FDA-Public Use
  Company Number: US-ASTRAZENECA-2010SE44843

PATIENT
  Age: 69 Year
  Sex: Female
  Weight: 96.2 kg

DRUGS (12)
  1. SEROQUEL [Suspect]
     Indication: BIPOLAR DISORDER
     Route: 048
     Dates: start: 20050101, end: 20101001
  2. SEROQUEL [Suspect]
     Route: 048
     Dates: start: 20101001
  3. BENTYL [Concomitant]
  4. AMBIEN [Concomitant]
     Indication: SLEEP DISORDER
  5. OMEPRAZOLE [Concomitant]
     Indication: GASTROOESOPHAGEAL REFLUX DISEASE
  6. NORCO [Concomitant]
     Indication: PAIN
  7. CHOLESTEROL MEDICATION [Concomitant]
     Indication: HYPERCHOLESTEROLAEMIA
  8. CYMBALTA [Concomitant]
  9. METFORMIN [Concomitant]
     Indication: DIABETES MELLITUS
  10. EYE DROPS [Concomitant]
     Indication: EYE DISORDER
  11. NORVASC [Concomitant]
     Indication: HYPERTENSION
  12. LISINOPRIL [Concomitant]
     Indication: HYPERTENSION

REACTIONS (10)
  - ANXIETY [None]
  - INCORRECT DOSE ADMINISTERED [None]
  - EYE DISORDER [None]
  - HALLUCINATIONS, MIXED [None]
  - BLOOD CHOLESTEROL INCREASED [None]
  - SUICIDAL IDEATION [None]
  - DIABETES MELLITUS [None]
  - DRUG DOSE OMISSION [None]
  - THINKING ABNORMAL [None]
  - HALLUCINATION, VISUAL [None]
